FAERS Safety Report 7229144-6 (Version None)
Quarter: 2011Q1

REPORT INFORMATION
  Report Type: 
  Country: None (occurrence: None)
  Receive Date: 20110117
  Receipt Date: 20110106
  Transmission Date: 20110831
  Serious: Yes (Hospitalization, Other)
  Sender: FDA-Public Use
  Company Number: US-PFIZER INC-2010126137

PATIENT
  Sex: Female

DRUGS (1)
  1. CHANTIX [Suspect]
     Indication: SMOKING CESSATION THERAPY
     Dosage: 1 MG, PER DAY
     Dates: start: 20080814, end: 20081007

REACTIONS (4)
  - INTENTIONAL OVERDOSE [None]
  - ANXIETY [None]
  - DEPRESSION [None]
  - SUICIDE ATTEMPT [None]
